FAERS Safety Report 13230551 (Version 1)
Quarter: 2017Q1

REPORT INFORMATION
  Report Type: Spontaneous
  Country: GR (occurrence: GR)
  Receive Date: 20170214
  Receipt Date: 20170214
  Transmission Date: 20170428
  Serious: Yes (Other)
  Sender: FDA-Public Use
  Company Number: GR-GLAXOSMITHKLINE-GR2017GSK018522

PATIENT
  Age: 38 Year
  Sex: Female

DRUGS (1)
  1. INDOXYL GEL (BENZOYL PEROXIDE CLINDAMYCIN) [Suspect]
     Active Substance: BENZOYL PEROXIDE\CLINDAMYCIN PHOSPHATE
     Indication: ACNE
     Dosage: ONE APPLICATION ABOVE EYEBROWS AND CHEEK
     Dates: start: 20170127, end: 20170127

REACTIONS (5)
  - Angioedema [Recovered/Resolved]
  - Application site erythema [Recovered/Resolved]
  - Face oedema [Recovered/Resolved]
  - Application site oedema [Recovered/Resolved]
  - Erythema [Recovered/Resolved]
